FAERS Safety Report 19187305 (Version 1)
Quarter: 2021Q2

REPORT INFORMATION
  Report Type: Spontaneous
  Country: CA (occurrence: CA)
  Receive Date: 20210427
  Receipt Date: 20210427
  Transmission Date: 20210717
  Serious: Yes (Other)
  Sender: FDA-Public Use
  Company Number: CA-BAUSCH-BL-2021-014145

PATIENT
  Age: 65 Year
  Sex: Male

DRUGS (1)
  1. CICLOPIROX OLAMINE. [Suspect]
     Active Substance: CICLOPIROX OLAMINE
     Indication: SEBORRHOEIC DERMATITIS
     Route: 065

REACTIONS (3)
  - Prostate cancer [Unknown]
  - Skin burning sensation [Unknown]
  - Alopecia [Unknown]
